FAERS Safety Report 25896409 (Version 1)
Quarter: 2025Q4

REPORT INFORMATION
  Report Type: Spontaneous
  Country: EU (occurrence: EU)
  Receive Date: 20251008
  Receipt Date: 20251008
  Transmission Date: 20260118
  Serious: Yes (Hospitalization, Other)
  Sender: GLAND PHARMA LTD
  Company Number: EU-GLANDPHARMA-IT-2025GLNLIT01966

PATIENT
  Age: 48 Year
  Sex: Female

DRUGS (11)
  1. CARBOPLATIN [Suspect]
     Active Substance: CARBOPLATIN
     Indication: Ovarian cancer
     Dosage: FIRST-LINE CHEMOTHERAPY, 6 CYCLES OF AUC6
     Route: 065
     Dates: start: 20171127, end: 20180409
  2. CARBOPLATIN [Suspect]
     Active Substance: CARBOPLATIN
     Dosage: SECOND-LINE CHEMOTHERAPY, 4 CYCLESOF AUC5
     Route: 065
     Dates: start: 20190520
  3. CARBOPLATIN [Suspect]
     Active Substance: CARBOPLATIN
     Dosage: FOURTH-LINE CHEMOTHERAPY, 6 CYCLES
     Route: 065
     Dates: start: 202201, end: 202205
  4. PACLITAXEL [Suspect]
     Active Substance: PACLITAXEL
     Indication: Ovarian cancer
     Dosage: FIRST-LINE CHEMOTHERAPY, 6 CYCLES
     Route: 065
     Dates: start: 201711, end: 201804
  5. PACLITAXEL [Suspect]
     Active Substance: PACLITAXEL
     Dosage: SECOND-LINE CHEMOTHERAPY, 4 CYCLES
     Route: 065
     Dates: start: 20190520
  6. PACLITAXEL [Suspect]
     Active Substance: PACLITAXEL
     Dosage: SIX CYCLES
     Route: 065
     Dates: start: 202212
  7. GEMCITABINE [Suspect]
     Active Substance: GEMCITABINE
     Indication: Ovarian cancer
     Dosage: SIX CYCLES
     Route: 065
     Dates: start: 202201, end: 202205
  8. OLAPARIB [Concomitant]
     Active Substance: OLAPARIB
     Indication: Ovarian cancer
     Dosage: MAINTENANCE THERAPY
     Route: 065
     Dates: start: 202001
  9. TRABECTEDIN [Concomitant]
     Active Substance: TRABECTEDIN
     Indication: Ovarian cancer
     Dosage: 3 CYCLES, THIRD-LINE TREATMENT
     Route: 065
     Dates: start: 20200219
  10. DOXORUBICIN [Concomitant]
     Active Substance: DOXORUBICIN
     Indication: Ovarian cancer
     Dosage: 3 CYCLES, THIRD-LINE TREATMENT
     Route: 065
  11. LYRICA [Concomitant]
     Active Substance: PREGABALIN
     Indication: Neuropathy peripheral
     Route: 065

REACTIONS (5)
  - Laryngeal oedema [Unknown]
  - Neutropenia [Unknown]
  - Anaemia [Unknown]
  - Alopecia [Unknown]
  - Therapeutic product effect incomplete [Unknown]

NARRATIVE: CASE EVENT DATE: 20190728
